FAERS Safety Report 9892306 (Version 2)
Quarter: 2014Q1

REPORT INFORMATION
  Report Type: Spontaneous
  Country: US (occurrence: US)
  Receive Date: 20140212
  Receipt Date: 20140212
  Transmission Date: 20141002
  Serious: No
  Sender: FDA-Public Use
  Company Number: US-MALLINCKRODT-T201400021

PATIENT
  Age: 74 Year
  Sex: Male

DRUGS (1)
  1. FENTANYL TRANSDERMAL SYSTEM [Suspect]
     Indication: PRODUCT USED FOR UNKNOWN INDICATION
     Dosage: 25 UG/HR,, 1 FTS AVERY 72 HOURS
     Route: 062
     Dates: start: 201304

REACTIONS (2)
  - Application site pain [Recovered/Resolved]
  - Incorrect drug administration duration [Recovered/Resolved]
